FAERS Safety Report 8070273-5 (Version None)
Quarter: 2012Q1

REPORT INFORMATION
  Report Type: 
  Country: None (occurrence: None)
  Receive Date: 20120125
  Receipt Date: 20120116
  Transmission Date: 20120608
  Serious: Yes (Other)
  Sender: FDA-Public Use
  Company Number: ES-NOVOPROD-343133

PATIENT
  Age: 4 Year
  Sex: Female

DRUGS (1)
  1. NORDITROPIN [Suspect]
     Indication: FOETAL GROWTH RESTRICTION
     Dosage: 0.4 MG, QD
     Route: 065
     Dates: start: 20111001

REACTIONS (1)
  - VIITH NERVE PARALYSIS [None]
